FAERS Safety Report 4802467-3 (Version None)
Quarter: 2005Q4

REPORT INFORMATION
  Report Type: 
  Country: None (occurrence: None)
  Receive Date: 20051014
  Receipt Date: 20050104
  Transmission Date: 20060501
  Serious: Yes (Other)
  Sender: FDA-Public Use
  Company Number: 2004096023

PATIENT
  Age: 30 Year
  Sex: Male
  Weight: 104.3273 kg

DRUGS (5)
  1. NEURONTIN [Suspect]
     Indication: HEAD INJURY
     Dosage: ORAL
     Route: 048
     Dates: start: 20040801, end: 20041001
  2. FLUOXETINE [Concomitant]
  3. BUPROPION HCL [Concomitant]
  4. RISPERIDONE [Concomitant]
  5. CELECOXIB (CELECOXIB) [Concomitant]

REACTIONS (2)
  - NIGHTMARE [None]
  - SUICIDAL IDEATION [None]
